FAERS Safety Report 13883884 (Version 1)
Quarter: 2017Q3

REPORT INFORMATION
  Report Type: Spontaneous
  Country: US (occurrence: None)
  Receive Date: 20170815
  Receipt Date: 20170815
  Transmission Date: 20171127
  Serious: No
  Sender: FDA-Public Use
  Company Number: None

PATIENT
  Age: 54 Year
  Sex: Female
  Weight: 54.88 kg

DRUGS (2)
  1. NO KNOWN DRUG [Concomitant]
     Indication: PRODUCT USED FOR UNKNOWN INDICATION
  2. TALTZ [Suspect]
     Active Substance: IXEKIZUMAB
     Indication: PSORIASIS
     Route: 058
     Dates: start: 20170728, end: 20170801

REACTIONS (5)
  - Injection site reaction [None]
  - Injection site warmth [None]
  - Injection site pain [None]
  - Injection site swelling [None]
  - Injection site erythema [None]

NARRATIVE: CASE EVENT DATE: 20170728
